FAERS Safety Report 17061477 (Version 3)
Quarter: 2020Q1

REPORT INFORMATION
  Report Type: Spontaneous
  Country: US (occurrence: US)
  Receive Date: 20191121
  Receipt Date: 20200103
  Transmission Date: 20200409
  Serious: No
  Sender: FDA-Public Use
  Company Number: US-BAYER-2019-205058

PATIENT
  Age: 27 Year
  Sex: Male
  Weight: 52.15 kg

DRUGS (1)
  1. JIVI [Suspect]
     Active Substance: DAMOCTOCOG ALFA PEGOL
     Indication: HAEMORRHAGE PROPHYLAXIS
     Dosage: 3200 U, TWO DOSES
     Route: 042
     Dates: start: 20191030

REACTIONS (2)
  - Intentional product use issue [None]
  - Intentional product misuse [None]

NARRATIVE: CASE EVENT DATE: 20191030
